FAERS Safety Report 18285364 (Version 1)
Quarter: 2020Q3

REPORT INFORMATION
  Report Type: Spontaneous
  Country: GB (occurrence: GB)
  Receive Date: 20200918
  Receipt Date: 20200918
  Transmission Date: 20201103
  Serious: Yes (Disabling, Other)
  Sender: FDA-Public Use
  Company Number: GB-SA-2020SA249463

PATIENT

DRUGS (3)
  1. AFLIBERCEPT [Suspect]
     Active Substance: AFLIBERCEPT
     Indication: NEOVASCULAR AGE-RELATED MACULAR DEGENERATION
     Dosage: UNK UNK, QD
     Route: 050
     Dates: start: 20200728, end: 20200728
  2. OXYBUPROCAINE HYDROCHLORIDE [Concomitant]
     Active Substance: BENOXINATE HYDROCHLORIDE
     Indication: LOCAL ANAESTHESIA
     Dosage: 0.5 ML, QD
     Route: 061
     Dates: start: 20200728, end: 20200728
  3. POVIDONE?IODINE. [Concomitant]
     Active Substance: POVIDONE-IODINE
     Indication: INFECTION PROPHYLAXIS
     Dosage: 0.4 ML, QD
     Route: 061
     Dates: start: 20200728, end: 20200728

REACTIONS (5)
  - Vision blurred [Not Recovered/Not Resolved]
  - Iridocyclitis [Recovered/Resolved with Sequelae]
  - Eye pain [Recovering/Resolving]
  - Corneal oedema [Recovering/Resolving]
  - Anterior chamber cell [Unknown]

NARRATIVE: CASE EVENT DATE: 20200728
